FAERS Safety Report 9215186 (Version 3)
Quarter: 2013Q2

REPORT INFORMATION
  Report Type: Spontaneous
  Country: US (occurrence: US)
  Receive Date: 20130405
  Receipt Date: 20130513
  Transmission Date: 20140414
  Serious: Yes (Other)
  Sender: FDA-Public Use
  Company Number: US-PFIZER INC-2013107014

PATIENT
  Age: 38 Year
  Sex: Female
  Weight: 108 kg

DRUGS (3)
  1. ZITHROMAX [Suspect]
     Indication: SINUSITIS
     Dosage: UNK (1-2 TABLETS), 1X/DAY
  2. AZITHROMYCIN [Suspect]
     Dosage: UNK
  3. LORATADINE [Concomitant]
     Dosage: 10 MG, 1X/DAY

REACTIONS (6)
  - Cardiac disorder [Not Recovered/Not Resolved]
  - Chest pain [Not Recovered/Not Resolved]
  - Feeling abnormal [Unknown]
  - Injury [Unknown]
  - Affective disorder [Not Recovered/Not Resolved]
  - Malaise [Not Recovered/Not Resolved]
